FAERS Safety Report 9139968 (Version 1)
Quarter: 2013Q1

REPORT INFORMATION
  Report Type: Spontaneous
  Country: US (occurrence: US)
  Receive Date: 20130305
  Receipt Date: 20130305
  Transmission Date: 20140127
  Serious: Yes (Other)
  Sender: FDA-Public Use
  Company Number: US-TEVA-389160USA

PATIENT
  Sex: Female

DRUGS (3)
  1. PRAVASTATIN [Suspect]
  2. CLONAZEPAM [Suspect]
  3. OXYBUTYNIN [Suspect]

REACTIONS (1)
  - Coeliac disease [Unknown]
